FAERS Safety Report 5528031-9 (Version None)
Quarter: 2007Q4

REPORT INFORMATION
  Report Type: 
  Country: None (occurrence: None)
  Receive Date: 20071128
  Receipt Date: 20071119
  Transmission Date: 20080405
  Serious: Yes (Death)
  Sender: FDA-Public Use
  Company Number: NL-PURDUE-GBR_2007_0003492

PATIENT
  Age: 95 Year
  Sex: Female

DRUGS (3)
  1. OXYCONTIN [Suspect]
     Indication: LUNG NEOPLASM MALIGNANT
     Dosage: 5 MG, BID
     Route: 065
     Dates: start: 20050121
  2. PAROXETINE HCL [Concomitant]
     Indication: DEPRESSION
     Route: 065
  3. PULMICORT [Concomitant]
     Indication: DYSPNOEA
     Route: 065

REACTIONS (1)
  - DEATH [None]
